FAERS Safety Report 11240797 (Version 2)
Quarter: 2015Q3

REPORT INFORMATION
  Report Type: Spontaneous
  Country: US (occurrence: US)
  Receive Date: 20150706
  Receipt Date: 20150715
  Transmission Date: 20151125
  Serious: No
  Sender: FDA-Public Use
  Company Number: US-ASTRAZENECA-2015SE55686

PATIENT
  Age: 775 Month
  Sex: Female

DRUGS (2)
  1. SYMBICORT [Suspect]
     Active Substance: BUDESONIDE\FORMOTEROL FUMARATE DIHYDRATE
     Indication: ASTHMA
     Dosage: 160 / 4.5 MCG, 2 PUFFS TWICE DAILY
     Route: 055
     Dates: start: 201409
  2. SYMBICORT [Suspect]
     Active Substance: BUDESONIDE\FORMOTEROL FUMARATE DIHYDRATE
     Indication: ASTHMA
     Dosage: 160 / 4.5 MCG, AS NEEDED
     Route: 055

REACTIONS (4)
  - Product quality issue [Unknown]
  - Bronchitis [Recovered/Resolved]
  - Cough [Unknown]
  - Intentional product misuse [Unknown]

NARRATIVE: CASE EVENT DATE: 201505
